APPROVED DRUG PRODUCT: ELESTAT
Active Ingredient: EPINASTINE HYDROCHLORIDE
Strength: 0.05% **Federal Register determination that product was not discontinued or withdrawn for safety or effectiveness reasons**
Dosage Form/Route: SOLUTION/DROPS;OPHTHALMIC
Application: N021565 | Product #001
Applicant: ALLERGAN INC
Approved: Oct 16, 2003 | RLD: Yes | RS: No | Type: DISCN